FAERS Safety Report 6841787-8 (Version None)
Quarter: 2010Q3

REPORT INFORMATION
  Report Type: 
  Country: None (occurrence: None)
  Receive Date: 20100709
  Receipt Date: 20100625
  Transmission Date: 20110219
  Serious: Yes (Hospitalization)
  Sender: FDA-Public Use
  Company Number: 006396

PATIENT
  Age: 29 Year
  Sex: Female

DRUGS (1)
  1. VIMPAT [Suspect]
     Indication: EPILEPSY
     Dosage: (ORAL)
     Route: 048

REACTIONS (1)
  - SOMATOFORM DISORDER [None]
